FAERS Safety Report 13532181 (Version 2)
Quarter: 2017Q2

REPORT INFORMATION
  Report Type: Spontaneous
  Country: CH (occurrence: CH)
  Receive Date: 20170510
  Receipt Date: 20170522
  Transmission Date: 20170830
  Serious: Yes (Hospitalization, Other)
  Sender: FDA-Public Use
  Company Number: CH-PFIZER INC-2017171743

PATIENT
  Age: 14 Year
  Sex: Female
  Weight: 49 kg

DRUGS (2)
  1. ZOLOFT [Suspect]
     Active Substance: SERTRALINE HYDROCHLORIDE
     Dosage: 1-2 TABLETS OF 50MG/DAY
     Route: 048
     Dates: end: 20170329
  2. ZOLOFT [Suspect]
     Active Substance: SERTRALINE HYDROCHLORIDE
     Dosage: 200MG (4 TABLETS OF ZOLOFT 50MG )(ON THE EVENING OF 29MAR17)
     Dates: start: 20170329, end: 20170329

REACTIONS (13)
  - Agitation [Recovering/Resolving]
  - Paraesthesia [Recovering/Resolving]
  - Tremor [Recovering/Resolving]
  - Dysgeusia [Recovering/Resolving]
  - Nausea [Recovering/Resolving]
  - Insomnia [Recovering/Resolving]
  - Hyperkinesia [Recovering/Resolving]
  - Vertigo [Recovering/Resolving]
  - Headache [Unknown]
  - Extrapyramidal disorder [Recovering/Resolving]
  - Muscle contractions involuntary [Recovering/Resolving]
  - Hypertonia [Recovering/Resolving]
  - Hallucination [Unknown]

NARRATIVE: CASE EVENT DATE: 20170329
